FAERS Safety Report 5426811-1 (Version None)
Quarter: 2007Q3

REPORT INFORMATION
  Report Type: 
  Country: None (occurrence: None)
  Receive Date: 20070827
  Receipt Date: 20070223
  Transmission Date: 20080115
  Serious: No
  Sender: FDA-Public Use
  Company Number: US-BOEHRINGER INGELHEIM PHARMACEUTICALS, INC.-2007-BP-02656BP

PATIENT
  Sex: Male

DRUGS (9)
  1. CATAPRES-TTS-1 [Suspect]
     Indication: HYPERTENSION
     Route: 061
     Dates: start: 20050501
  2. CLONIDINE [Concomitant]
     Indication: HYPERTENSION
     Route: 048
  3. PROCRIT [Concomitant]
     Indication: ANAEMIA
     Route: 058
  4. CALCITRIOL [Concomitant]
     Indication: OSTEOPOROSIS
     Route: 048
  5. PROCARDIA XL [Concomitant]
     Indication: BLOOD PRESSURE
     Route: 048
  6. LABETALOL HCL [Concomitant]
     Indication: BLOOD PRESSURE
     Route: 048
  7. QUINAPRIL HCL [Concomitant]
     Indication: BLOOD GLUCOSE
     Route: 048
  8. PRAZOSIN HCL [Concomitant]
     Indication: BLOOD PRESSURE
     Route: 048
  9. POTASSIUM CHLORIDE [Concomitant]
     Route: 048

REACTIONS (4)
  - APPLICATION SITE EXCORIATION [None]
  - APPLICATION SITE IRRITATION [None]
  - APPLICATION SITE PRURITUS [None]
  - APPLICATION SITE RASH [None]
